FAERS Safety Report 18279563 (Version 1)
Quarter: 2020Q3

REPORT INFORMATION
  Report Type: Spontaneous
  Country: US (occurrence: US)
  Receive Date: 20200917
  Receipt Date: 20200917
  Transmission Date: 20201103
  Serious: No
  Sender: FDA-Public Use
  Company Number: US-ADAMAS PHARMA, LLC-2020ADA01892

PATIENT
  Age: 61 Year
  Sex: Male

DRUGS (17)
  1. CANNABIDIOL [Concomitant]
     Active Substance: CANNABIDIOL
  2. VITAMIN D3 [Concomitant]
     Active Substance: CHOLECALCIFEROL
  3. METOPROLOL TARTRATE. [Concomitant]
     Active Substance: METOPROLOL TARTRATE
  4. GOCOVRI [Suspect]
     Active Substance: AMANTADINE
     Dosage: 274 MG, 1X/DAY
     Dates: start: 20200730
  5. GOCOVRI [Suspect]
     Active Substance: AMANTADINE
     Indication: DYSKINESIA
     Dosage: 137 MG, 1X/DAY
     Dates: start: 20200723, end: 20200729
  6. BACLOFEN. [Concomitant]
     Active Substance: BACLOFEN
  7. DOCUSATE SODIUM. [Concomitant]
     Active Substance: DOCUSATE SODIUM
  8. NEUPRO [Concomitant]
     Active Substance: ROTIGOTINE
  9. MAGNESIUM [Concomitant]
     Active Substance: MAGNESIUM
  10. PANTOPRAZOLE [Concomitant]
     Active Substance: PANTOPRAZOLE
  11. PROBIOTIC [Concomitant]
     Active Substance: PROBIOTICS NOS
  12. VITAMIN B12 [Concomitant]
     Active Substance: CYANOCOBALAMIN
  13. ALPHA?LIPOIC [Concomitant]
  14. CLOZAPINE. [Concomitant]
     Active Substance: CLOZAPINE
  15. RYTARY [Concomitant]
     Active Substance: CARBIDOPA\LEVODOPA
  16. SENNA?PLUS [Concomitant]
     Active Substance: DOCUSATE SODIUM\SENNOSIDES
  17. UNSPECIFIED MULTI?PURPOSE SOLUTION [Concomitant]

REACTIONS (2)
  - Chest discomfort [Unknown]
  - Dysuria [Unknown]

NARRATIVE: CASE EVENT DATE: 202007
